FAERS Safety Report 6180167-8 (Version None)
Quarter: 2009Q2

REPORT INFORMATION
  Report Type: 
  Country: None (occurrence: None)
  Receive Date: 20090501
  Receipt Date: 20090417
  Transmission Date: 20091009
  Serious: Yes (Hospitalization)
  Sender: FDA-Public Use
  Company Number: TCI2009A01349

PATIENT
  Age: 72 Year
  Sex: Female

DRUGS (6)
  1. LANSOPRAZOLE [Suspect]
     Indication: GASTRITIS PROPHYLAXIS
     Dosage: 30 MG (30 MG, 1 IN 1 D) 1),  INTRAVENOUS
     Route: 042
     Dates: start: 20090223, end: 20090224
  2. LANSOPRAZOLE [Suspect]
     Indication: GASTRITIS PROPHYLAXIS
     Dosage: 30 MG (30 MG, 1IN 1 D) , PER ORAL
     Route: 048
     Dates: start: 20090227, end: 20090227
  3. SOLDEM 3A (GLUCOSE, SODIUM LACTATE, POTASSIUM CHLORIDE, SODIUM CHLORID [Concomitant]
  4. HUMULIN R [Concomitant]
  5. NICARDIPINE HYDROCHLORIDE [Concomitant]
  6. ONOACT (LANDIOLOL HYDROCHLORIDE) [Concomitant]

REACTIONS (1)
  - RHABDOMYOLYSIS [None]
